FAERS Safety Report 12465008 (Version 1)
Quarter: 2016Q2

REPORT INFORMATION
  Report Type: Spontaneous
  Country: US (occurrence: US)
  Receive Date: 20160614
  Receipt Date: 20160614
  Transmission Date: 20160815
  Serious: No
  Sender: FDA-Public Use
  Company Number: US-009507513-1606USA002306

PATIENT
  Sex: Female

DRUGS (1)
  1. INTRON A [Suspect]
     Active Substance: INTERFERON ALFA-2B
     Indication: MALIGNANT MELANOMA
     Dosage: 8 MILLIUNITS, TIW
     Route: 058
     Dates: end: 20160506

REACTIONS (2)
  - Blood thyroid stimulating hormone decreased [Unknown]
  - Thyroiditis [Unknown]
